FAERS Safety Report 5101281-1 (Version None)
Quarter: 2006Q3

REPORT INFORMATION
  Report Type: 
  Country: None (occurrence: None)
  Receive Date: 20060731
  Receipt Date: 20060410
  Transmission Date: 20061208
  Serious: No
  Sender: FDA-Public Use
  Company Number: 2006PV011934

PATIENT
  Age: 62 Year
  Sex: Male
  Weight: 113.8529 kg

DRUGS (3)
  1. BYETTA [Suspect]
     Indication: DIABETES MELLITUS NON-INSULIN-DEPENDENT
     Dosage: 5 MCG; BID; SC
     Route: 058
     Dates: start: 20060329
  2. GLUCOPHAGE [Concomitant]
  3. GLIPIZIED XL [Concomitant]

REACTIONS (6)
  - DECREASED APPETITE [None]
  - GASTROENTERITIS VIRAL [None]
  - HEADACHE [None]
  - MALAISE [None]
  - NAUSEA [None]
  - WEIGHT DECREASED [None]
